FAERS Safety Report 4402097-1 (Version None)
Quarter: 2004Q3

REPORT INFORMATION
  Report Type: 
  Country: None (occurrence: None)
  Receive Date: 20040714
  Receipt Date: 20040701
  Transmission Date: 20050211
  Serious: Yes (Life-Threatening, Hospitalization)
  Sender: FDA-Public Use
  Company Number: 04P-087-0265497-00

PATIENT
  Age: 56 Year
  Sex: Male

DRUGS (5)
  1. WARFARIN SODIUM [Suspect]
     Dosage: 3 MG, 3 IN 1 D, PER ORAL
     Route: 048
     Dates: start: 20040408
  2. BLOPRESS TABLETS (CANDESARTAN CILEXETIL) (CANDESARTAN CILEXETIL) [Suspect]
     Indication: HYPERTENSION
     Dosage: 4 MG, 1 IN 1 D, PER ORAL
     Route: 048
     Dates: start: 20040408, end: 20040615
  3. FAMOTIDINE [Suspect]
     Dosage: 20 MG, 1 IN 1 D, PER ORAL
     Route: 048
     Dates: start: 20040408
  4. DISOPYRAMIDE [Suspect]
     Dosage: 1 TABLET, 1 IN 1 D, PER ORAL
     Route: 048
     Dates: start: 20040408
  5. DIPYRIDAMOLE [Suspect]
     Dosage: PER ORAL
     Route: 048
     Dates: start: 20040408

REACTIONS (4)
  - ANOREXIA [None]
  - EPISTAXIS [None]
  - HEPATITIS FULMINANT [None]
  - MALAISE [None]
